FAERS Safety Report 8905457 (Version 4)
Quarter: 2013Q3

REPORT INFORMATION
  Report Type: Report from Study
  Country: CA (occurrence: CA)
  Receive Date: 20121112
  Receipt Date: 20130913
  Transmission Date: 20140515
  Serious: Yes (Other)
  Sender: FDA-Public Use
  Company Number: CA-JNJFOC-20120905053

PATIENT
  Age: 29 Year
  Sex: Female
  Weight: 53 kg

DRUGS (4)
  1. REMICADE [Suspect]
     Indication: CROHN^S DISEASE
     Route: 042
     Dates: start: 20100329
  2. REMICADE [Suspect]
     Indication: CROHN^S DISEASE
     Route: 042
     Dates: start: 20121031, end: 20121102
  3. HYDROCORTISONE [Concomitant]
     Indication: PREMEDICATION
     Route: 042
  4. PREDNISONE [Concomitant]
     Route: 065

REACTIONS (9)
  - Infusion related reaction [Recovering/Resolving]
  - Arthralgia [Recovering/Resolving]
  - Placenta praevia [Unknown]
  - Exposure during pregnancy [Recovered/Resolved]
  - Dyspnoea [Recovering/Resolving]
  - Condition aggravated [Unknown]
  - Back pain [Unknown]
  - Headache [Unknown]
  - Cough [Unknown]
